FAERS Safety Report 12622940 (Version 4)
Quarter: 2016Q4

REPORT INFORMATION
  Report Type: Report from Study
  Country: CA (occurrence: CA)
  Receive Date: 20160804
  Receipt Date: 20161028
  Transmission Date: 20170207
  Serious: Yes (Hospitalization, Other)
  Sender: FDA-Public Use
  Company Number: CA-TAKEDA-2016TUS010804

PATIENT
  Age: 57 Year
  Sex: Female

DRUGS (6)
  1. CLONAZEPAM. [Concomitant]
     Active Substance: CLONAZEPAM
     Indication: BIPOLAR DISORDER
     Dosage: UNK UNK, QD
     Dates: start: 2008
  2. CLONAZEPAM. [Concomitant]
     Active Substance: CLONAZEPAM
     Indication: ANXIETY
  3. VEDOLIZUMAB [Suspect]
     Active Substance: VEDOLIZUMAB
     Indication: CROHN^S DISEASE
     Dosage: 300 MG, UNK
     Route: 042
     Dates: start: 20160518, end: 20160929
  4. NABILONE [Concomitant]
     Active Substance: NABILONE
     Indication: NAUSEA
     Dosage: UNK UNK, QD
  5. CITALOPRAM [Concomitant]
     Active Substance: CITALOPRAM HYDROBROMIDE
     Indication: BIPOLAR DISORDER
     Dosage: 30 MG, QD
  6. SYNTHROID [Concomitant]
     Active Substance: LEVOTHYROXINE SODIUM
     Indication: THYROID DISORDER
     Dosage: 50 ?G, QD
     Route: 048
     Dates: start: 2011

REACTIONS (13)
  - Cholangitis [Unknown]
  - Vulvovaginal dryness [Unknown]
  - Hepatic pain [Unknown]
  - Nasal dryness [Unknown]
  - Infection [Recovered/Resolved]
  - Dizziness [Unknown]
  - Myalgia [Unknown]
  - Ear pain [Unknown]
  - Pain in jaw [Unknown]
  - Organ failure [Unknown]
  - Lung infection [Unknown]
  - Facial paralysis [Not Recovered/Not Resolved]
  - Gastrointestinal pain [Unknown]

NARRATIVE: CASE EVENT DATE: 2016
